FAERS Safety Report 5772475-7 (Version None)
Quarter: 2008Q2

REPORT INFORMATION
  Report Type: 
  Country: None (occurrence: None)
  Receive Date: 20080613
  Receipt Date: 20080605
  Transmission Date: 20081010
  Serious: Yes (Hospitalization)
  Sender: FDA-Public Use
  Company Number: US-ELI_LILLY_AND_COMPANY-US200806001492

PATIENT
  Age: 38 Year
  Sex: Female

DRUGS (2)
  1. BYETTA [Suspect]
     Dosage: 10 UG, UNKNOWN
     Dates: start: 20060101, end: 20080101
  2. METFORMIN [Concomitant]

REACTIONS (4)
  - GALLBLADDER OPERATION [None]
  - NAUSEA [None]
  - PANCREATIC INSUFFICIENCY [None]
  - WEIGHT DECREASED [None]
